FAERS Safety Report 11288641 (Version 1)
Quarter: 2015Q3

REPORT INFORMATION
  Report Type: Spontaneous
  Country: GB (occurrence: GB)
  Receive Date: 20150721
  Receipt Date: 20150721
  Transmission Date: 20151125
  Serious: Yes (Other)
  Sender: FDA-Public Use
  Company Number: GB-JNJFOC-20150711486

PATIENT
  Age: 34 Year
  Sex: Female

DRUGS (2)
  1. SIMPONI [Suspect]
     Active Substance: GOLIMUMAB
     Indication: PRODUCT USED FOR UNKNOWN INDICATION
     Dosage: PATIENT INJECTED ON 18-JUN (UNSPECIFIED YEAR)
     Route: 058
  2. SIMPONI [Suspect]
     Active Substance: GOLIMUMAB
     Indication: PRODUCT USED FOR UNKNOWN INDICATION
     Route: 058
     Dates: start: 20150618

REACTIONS (4)
  - Lower respiratory tract infection [Unknown]
  - Root canal infection [Recovered/Resolved]
  - Treatment noncompliance [Unknown]
  - Tonsillitis [Unknown]

NARRATIVE: CASE EVENT DATE: 2013
